FAERS Safety Report 9973684 (Version 5)
Quarter: 2014Q1

REPORT INFORMATION
  Report Type: Spontaneous
  Country: BR (occurrence: BR)
  Receive Date: 20140306
  Receipt Date: 20140331
  Transmission Date: 20141002
  Serious: Yes (Other)
  Sender: FDA-Public Use
  Company Number: BR-PFIZER INC-2014062002

PATIENT
  Age: 39 Year
  Sex: Male
  Weight: 95 kg

DRUGS (5)
  1. TECTA [Suspect]
     Indication: ABDOMINAL PAIN UPPER
     Dosage: STRENGTH: 40 MG
     Route: 065
     Dates: start: 2011
  2. TECTA [Suspect]
     Indication: DYSPEPSIA
     Dosage: 40 MG, 1X/DAY
     Route: 048
     Dates: start: 20140215, end: 20140227
  3. SELOZOK [Concomitant]
     Dosage: 25 MG, UNK
     Dates: start: 201105
  4. CRESTOR [Concomitant]
     Dosage: UNK
     Dates: start: 201105
  5. SOMALGIN [Concomitant]
     Dosage: UNK
     Dates: start: 201105

REACTIONS (5)
  - Syncope [Recovered/Resolved]
  - Generalised oedema [Recovered/Resolved]
  - Hypersensitivity [Recovered/Resolved]
  - Headache [Recovered/Resolved]
  - Dizziness [Unknown]
